FAERS Safety Report 8978959 (Version 1)
Quarter: 2012Q4

REPORT INFORMATION
  Report Type: Spontaneous
  Country: US (occurrence: None)
  Receive Date: 20121221
  Receipt Date: 20121221
  Transmission Date: 20130627
  Serious: Yes (Disabling)
  Sender: FDA-Public Use
  Company Number: None

PATIENT
  Age: 43 Year
  Sex: Male
  Weight: 92.99 kg

DRUGS (1)
  1. BETAMETHASONE [Suspect]

REACTIONS (6)
  - Joint range of motion decreased [None]
  - Rash generalised [None]
  - Hot flush [None]
  - Feeling cold [None]
  - Rash erythematous [None]
  - Musculoskeletal pain [None]
